FAERS Safety Report 24009348 (Version 1)
Quarter: 2024Q2

REPORT INFORMATION
  Report Type: Spontaneous
  Country: US (occurrence: None)
  Receive Date: 20240624
  Receipt Date: 20240624
  Transmission Date: 20240716
  Serious: No
  Sender: FDA-Public Use
  Company Number: None

PATIENT
  Age: 49 Year
  Sex: Female

DRUGS (1)
  1. COSENTYX [Suspect]
     Active Substance: SECUKINUMAB
     Indication: Psoriatic arthropathy
     Dosage: ?INJECT 150MG (1 PEN) SUBCUTANEOUSLY EVERY 4 WEEKS AS DIRECTED.
     Route: 058
     Dates: start: 202402

REACTIONS (2)
  - Product dose omission issue [None]
  - Hospitalisation [None]
